FAERS Safety Report 9257134 (Version 1)
Quarter: 2013Q1

REPORT INFORMATION
  Report Type: Spontaneous
  Country: US (occurrence: None)
  Receive Date: 20121212
  Receipt Date: 20121212
  Transmission Date: 20140127
  Serious: Yes (Disabling)
  Sender: FDA-Public Use
  Company Number: 1208USA000126

PATIENT
  Age: 49 Year
  Sex: 0

DRUGS (5)
  1. VICTRELIS [Suspect]
     Route: 048
     Dates: start: 201208
  2. PEG-INTRON ( PEGINTERFERON ALFA-2B) POWDER FOR INJECTION [Concomitant]
  3. RIBASPHERE ( RIBAVIRIN) [Concomitant]
  4. CHONDROITIN SULFATE SODIUM ( CHONDROITIN SULFATE SODIUM) CAPSULE [Concomitant]
  5. VITAMINS ( UNSPECIFIED) (VITAMINS UNSPECIFIED) TABLET [Concomitant]

REACTIONS (1)
  - Adverse event [None]
